FAERS Safety Report 17941315 (Version 3)
Quarter: 2020Q3

REPORT INFORMATION
  Report Type: Spontaneous
  Country: US (occurrence: US)
  Receive Date: 20200625
  Receipt Date: 20200730
  Transmission Date: 20201103
  Serious: No
  Sender: FDA-Public Use
  Company Number: US-SA-2020SA159867

PATIENT

DRUGS (1)
  1. LOVENOX [Suspect]
     Active Substance: ENOXAPARIN SODIUM
     Dosage: UNK
     Route: 065
     Dates: start: 20200520, end: 20200520

REACTIONS (2)
  - Occupational exposure to product [Unknown]
  - Injury associated with device [Unknown]

NARRATIVE: CASE EVENT DATE: 20200520
